FAERS Safety Report 7176350-5 (Version None)
Quarter: 2010Q4

REPORT INFORMATION
  Report Type: 
  Country: None (occurrence: None)
  Receive Date: 20101220
  Receipt Date: 20101213
  Transmission Date: 20110411
  Serious: Yes (Other)
  Sender: FDA-Public Use
  Company Number: US-PFIZER INC-2010170935

PATIENT
  Sex: Female
  Weight: 122.45 kg

DRUGS (4)
  1. LYRICA [Suspect]
     Indication: DEPRESSION
     Dosage: 150 MG, 3X/DAY
     Route: 048
     Dates: start: 20050101
  2. LYRICA [Suspect]
     Indication: ILL-DEFINED DISORDER
  3. AVAPRO [Concomitant]
     Indication: HYPERTENSION
     Dosage: UNK
  4. LABETALOL [Concomitant]
     Indication: HYPERTENSION
     Dosage: 300 MG, 2X/DAY

REACTIONS (2)
  - BACK PAIN [None]
  - NEURALGIA [None]
